FAERS Safety Report 10339156 (Version 2)
Quarter: 2014Q4

REPORT INFORMATION
  Report Type: Spontaneous
  Country: US (occurrence: US)
  Receive Date: 20140724
  Receipt Date: 20141016
  Transmission Date: 20150528
  Serious: Yes (Death, Hospitalization, Other)
  Sender: FDA-Public Use
  Company Number: US-GLAXOSMITHKLINE-A1030857A

PATIENT
  Sex: Male

DRUGS (1)
  1. AVANDIA [Suspect]
     Active Substance: ROSIGLITAZONE MALEATE
     Indication: DIABETES MELLITUS
     Dosage: 4 MG, QD
     Route: 048
     Dates: start: 200205, end: 200307

REACTIONS (10)
  - Arteriosclerosis [Fatal]
  - Cardiac failure congestive [Unknown]
  - Cardio-respiratory arrest [Fatal]
  - Ischaemic cardiomyopathy [Unknown]
  - Cardiogenic shock [Unknown]
  - Atrial fibrillation [Unknown]
  - Coronary artery disease [Fatal]
  - Cardiac arrest [Unknown]
  - Myocardial infarction [Unknown]
  - Ventricular tachycardia [Unknown]
